FAERS Safety Report 25323942 (Version 1)
Quarter: 2025Q2

REPORT INFORMATION
  Report Type: Spontaneous
  Country: NL (occurrence: NL)
  Receive Date: 20250516
  Receipt Date: 20250516
  Transmission Date: 20250717
  Serious: Yes (Life-Threatening, Hospitalization)
  Sender: PFIZER
  Company Number: None

PATIENT
  Age: 88 Year
  Sex: Male
  Weight: 80 kg

DRUGS (1)
  1. CLINDAMYCIN HYDROCHLORIDE [Suspect]
     Active Substance: CLINDAMYCIN HYDROCHLORIDE
     Indication: Localised infection
     Dosage: 600 MG, 3X/DAY
     Route: 048
     Dates: start: 20250425

REACTIONS (3)
  - Administration related reaction [Recovering/Resolving]
  - Pneumonia aspiration [Recovering/Resolving]
  - Oesophageal injury [Recovering/Resolving]

NARRATIVE: CASE EVENT DATE: 20250425
